FAERS Safety Report 7121337-1 (Version None)
Quarter: 2010Q4

REPORT INFORMATION
  Report Type: 
  Country: None (occurrence: None)
  Receive Date: 20101119
  Receipt Date: 20101119
  Transmission Date: 20110411
  Serious: Yes (Other)
  Sender: FDA-Public Use
  Company Number: None

PATIENT

DRUGS (3)
  1. VENLAFAXINE [Suspect]
     Indication: OBSESSIVE-COMPULSIVE DISORDER
     Dosage: 2 CAPS ONCE DAILY PO
     Route: 048
     Dates: start: 20101009, end: 20101115
  2. VENLAFAXINE [Suspect]
     Indication: PANIC ATTACK
     Dosage: 2 CAPS ONCE DAILY PO
     Route: 048
     Dates: start: 20101009, end: 20101115
  3. VENLAFAXINE [Suspect]
     Indication: SUICIDAL IDEATION
     Dosage: 2 CAPS ONCE DAILY PO
     Route: 048
     Dates: start: 20101009, end: 20101115

REACTIONS (7)
  - ACTIVITIES OF DAILY LIVING IMPAIRED [None]
  - CHEST PAIN [None]
  - DRUG WITHDRAWAL SYNDROME [None]
  - HYPERTENSION [None]
  - MEDICATION RESIDUE [None]
  - OBSESSIVE-COMPULSIVE DISORDER [None]
  - PANIC ATTACK [None]
